FAERS Safety Report 4285799-X (Version None)
Quarter: 2004Q1

REPORT INFORMATION
  Report Type: 
  Country: None (occurrence: None)
  Receive Date: 20040203
  Receipt Date: 20040119
  Transmission Date: 20041129
  Serious: Yes (Life-Threatening, Hospitalization, Other)
  Sender: FDA-Public Use
  Company Number: 2004S1000218

PATIENT
  Age: 56 Year
  Sex: Female
  Weight: 54.4316 kg

DRUGS (4)
  1. MAXZIDE [Suspect]
     Indication: MENIERE'S DISEASE
     Dosage: 37.5MG/25MG QD ORAL
     Route: 048
     Dates: start: 20031001, end: 20031201
  2. DIAZEPAM [Concomitant]
  3. ESTRADIOL [Concomitant]
  4. GLUCOSAMINE [Concomitant]

REACTIONS (8)
  - APLASTIC ANAEMIA [None]
  - CONTUSION [None]
  - DIZZINESS [None]
  - DYSPNOEA EXERTIONAL [None]
  - EPISTAXIS [None]
  - FATIGUE [None]
  - PALPITATIONS [None]
  - PANCYTOPENIA [None]
